FAERS Safety Report 8546922-1 (Version None)
Quarter: 2012Q3

REPORT INFORMATION
  Report Type: 
  Country: None (occurrence: None)
  Receive Date: 20120727
  Receipt Date: 20120119
  Transmission Date: 20120928
  Serious: No
  Sender: FDA-Public Use
  Company Number: US-ASTRAZENECA-2012SE03887

PATIENT
  Age: 55 Year
  Sex: Male
  Weight: 88.5 kg

DRUGS (7)
  1. CITALOPRAM HYDROBROMIDE [Concomitant]
  2. ATENOLOL [Concomitant]
  3. LAMOTRIGINE [Concomitant]
  4. CLONAZEPAM [Concomitant]
  5. RAMIPRIL [Concomitant]
  6. SEROQUEL XR [Suspect]
     Indication: MAJOR DEPRESSION
     Route: 048
  7. SEROQUEL XR [Suspect]
     Indication: BIPOLAR II DISORDER
     Route: 048

REACTIONS (5)
  - RHINORRHOEA [None]
  - MANIA [None]
  - INSOMNIA [None]
  - DRUG DOSE OMISSION [None]
  - NASOPHARYNGITIS [None]
